FAERS Safety Report 4390818-6 (Version None)
Quarter: 2004Q3

REPORT INFORMATION
  Report Type: 
  Country: None (occurrence: None)
  Receive Date: 20040706
  Receipt Date: 20040706
  Transmission Date: 20050211
  Serious: Yes (Hospitalization)
  Sender: FDA-Public Use
  Company Number: None

PATIENT
  Age: 85 Year
  Sex: Male
  Weight: 65.318 kg

DRUGS (21)
  1. GEMCITABINE [Suspect]
     Indication: PANCREATIC CARCINOMA
     Dosage: 134 MG IV Q 2 WKS
     Route: 042
     Dates: start: 20040601
  2. GEMCITABINE [Suspect]
     Indication: PANCREATIC CARCINOMA
     Dosage: 134 MG IV Q 2 WKS
     Route: 042
     Dates: start: 20040614
  3. IRINOTECAN [Suspect]
     Indication: PANCREATIC CARCINOMA
     Dosage: 196 MG IV Q 2 WKS
     Route: 042
     Dates: start: 20040601
  4. IRINOTECAN [Suspect]
     Indication: PANCREATIC CARCINOMA
     Dosage: 196 MG IV Q 2 WKS
     Route: 042
     Dates: start: 20040614
  5. DURAGESIC [Concomitant]
  6. PAROXETINE HCL [Concomitant]
  7. LOTENSIN [Concomitant]
  8. NORVASC [Concomitant]
  9. TOPROL-XL [Concomitant]
  10. ZOCOR [Concomitant]
  11. COMPAZINE [Concomitant]
  12. LORTAB [Concomitant]
  13. EFFEXOR [Concomitant]
  14. LOVENOX [Concomitant]
  15. COSOPT [Concomitant]
  16. PLAVIX [Concomitant]
  17. CENTRUM [Concomitant]
  18. NOVULINE N [Concomitant]
  19. AMBIEN [Concomitant]
  20. GAS X [Concomitant]
  21. TYLENOL [Concomitant]

REACTIONS (2)
  - ANAEMIA [None]
  - DIARRHOEA [None]
